FAERS Safety Report 10213328 (Version 2)
Quarter: 2014Q2

REPORT INFORMATION
  Report Type: Spontaneous
  Country: US (occurrence: None)
  Receive Date: 20140529
  Receipt Date: 20140606
  Transmission Date: 20141212
  Serious: Yes (Hospitalization)
  Sender: FDA-Public Use
  Company Number: UNT-2014-000882

PATIENT
  Age: 62 Year
  Sex: Female

DRUGS (14)
  1. REMODULIN [Suspect]
     Indication: COR PULMONALE CHRONIC
     Route: 042
     Dates: start: 20070802
  2. REMODULIN [Suspect]
     Indication: PULMONARY ARTERIAL HYPERTENSION
     Route: 042
     Dates: start: 20070802
  3. LETAIRIS (AMBRISENTAN) [Concomitant]
  4. COUMADIN /00014802/ (WARFARIN SODIUM) [Concomitant]
  5. LASIX /00032601/ (FUROSEMIDE) UNK, UNKUNK [Concomitant]
  6. SPIRONOLACTONE (SPIRONOLACTONE) [Concomitant]
  7. OXYCODONE (OXYCODONE) [Concomitant]
  8. POTASSIUM (POTASSIUM) [Concomitant]
  9. PLAQUENIL /00072602/ (HYDROXYCHLOROQUINE PHOSPHATE) [Concomitant]
  10. HUMALOG (INSULIN LISPRO) [Concomitant]
  11. BYETTA (EXENATIDE) [Concomitant]
  12. LANTUS (INSULIN GLARGINE) [Concomitant]
  13. EFFEXOR (VENLAFAXINE HYDROCHLORIDE) [Concomitant]
  14. PROTONIX (PANTOPRAZOLE SODIUM SESQUIHYDRATE) [Concomitant]

REACTIONS (1)
  - Dyspnoea [None]
